FAERS Safety Report 6909998-0 (Version None)
Quarter: 2010Q3

REPORT INFORMATION
  Report Type: 
  Country: None (occurrence: None)
  Receive Date: 20100806
  Receipt Date: 20100729
  Transmission Date: 20110219
  Serious: No
  Sender: FDA-Public Use
  Company Number: US-BIOGENIDEC-2010BI025852

PATIENT
  Age: 68 Year
  Sex: Female

DRUGS (4)
  1. AVONEX [Suspect]
     Indication: MULTIPLE SCLEROSIS
     Route: 030
     Dates: start: 20040501
  2. AVONEX [Suspect]
     Route: 030
  3. PROZAC [Concomitant]
     Indication: DEPRESSION
     Route: 048
     Dates: start: 19990101
  4. PROZAC [Concomitant]
     Route: 048
     Dates: start: 20100701

REACTIONS (4)
  - BRONCHITIS CHRONIC [None]
  - DYSPNOEA [None]
  - EMPHYSEMA [None]
  - RESTLESS LEGS SYNDROME [None]
